FAERS Safety Report 6770811-6 (Version None)
Quarter: 2010Q2

REPORT INFORMATION
  Report Type: 
  Country: None (occurrence: None)
  Receive Date: 20100614
  Receipt Date: 20100614
  Transmission Date: 20101027
  Serious: Yes (Hospitalization)
  Sender: FDA-Public Use
  Company Number: None

PATIENT
  Sex: Male
  Weight: 92.5 kg

DRUGS (14)
  1. ALIMTA [Suspect]
  2. TAXOTERE [Suspect]
  3. SIMVASTATIN [Concomitant]
  4. MORPHINE [Concomitant]
  5. MIRALAX [Concomitant]
  6. LISINOPRIL [Concomitant]
  7. FOLIC ACID [Concomitant]
  8. COMPAZINE [Concomitant]
  9. ALLOPURINOL [Concomitant]
  10. CEFEPIME [Concomitant]
  11. NS FLUIDS [Concomitant]
  12. ZOFRAN [Concomitant]
  13. TYLENOL [Concomitant]
  14. MEROPENEM [Concomitant]

REACTIONS (1)
  - PYREXIA [None]
